FAERS Safety Report 5648644-3 (Version None)
Quarter: 2008Q1

REPORT INFORMATION
  Report Type: 
  Country: None (occurrence: None)
  Receive Date: 20080304
  Receipt Date: 20080214
  Transmission Date: 20080703
  Serious: Yes (Death)
  Sender: FDA-Public Use
  Company Number: A0700772A

PATIENT
  Age: 51 Year
  Sex: Male
  Weight: 84.1 kg

DRUGS (11)
  1. ADVAIR DISKUS 100/50 [Suspect]
     Indication: ASTHMA
     Dosage: 1PUFF TWICE PER DAY
     Route: 055
     Dates: end: 20060104
  2. ALBUTEROL [Concomitant]
  3. LEVITRA [Concomitant]
  4. EPIPEN [Concomitant]
  5. PREDNISONE TAB [Concomitant]
  6. FLEXERIL [Concomitant]
  7. DARVOCET [Concomitant]
  8. ENALAPRIL MALEATE [Concomitant]
  9. LEXAPRO [Concomitant]
  10. NAPROXEN [Concomitant]
  11. BETAMETHASONE [Concomitant]

REACTIONS (13)
  - ANOXIC ENCEPHALOPATHY [None]
  - ASTHMA [None]
  - CARDIAC ARREST [None]
  - DYSPNOEA [None]
  - INCREASED UPPER AIRWAY SECRETION [None]
  - LUNG HYPERINFLATION [None]
  - PHARYNGOLARYNGEAL PAIN [None]
  - PRODUCTIVE COUGH [None]
  - PYREXIA [None]
  - RESPIRATORY ARREST [None]
  - RESPIRATORY TRACT CONGESTION [None]
  - SINUS OPERATION [None]
  - WHEEZING [None]
